FAERS Safety Report 4929134-X (Version None)
Quarter: 2006Q1

REPORT INFORMATION
  Report Type: 
  Country: None (occurrence: None)
  Receive Date: 20060301
  Receipt Date: 20060222
  Transmission Date: 20060701
  Serious: Yes (Other)
  Sender: FDA-Public Use
  Company Number: AU-BRISTOL-MYERS SQUIBB COMPANY-13291356

PATIENT
  Age: 62 Year
  Sex: Female

DRUGS (3)
  1. REYATAZ [Suspect]
     Route: 048
  2. EFAVIRENZ [Concomitant]
     Route: 048
  3. RITONAVIR [Concomitant]
     Route: 048

REACTIONS (4)
  - ANGIONEUROTIC OEDEMA [None]
  - BODY TEMPERATURE [None]
  - RASH ERYTHEMATOUS [None]
  - TACHYCARDIA [None]
